FAERS Safety Report 8901788 (Version 1)
Quarter: 2012Q4

REPORT INFORMATION
  Report Type: Spontaneous
  Country: US (occurrence: None)
  Receive Date: 20121105
  Receipt Date: 20121105
  Transmission Date: 20130627
  Serious: Yes (Hospitalization)
  Sender: FDA-Public Use
  Company Number: UTC-024800

PATIENT
  Age: 51 Year
  Sex: Female
  Weight: 58.77 kg

DRUGS (3)
  1. REMODULIN (10 MILLIGRAM/MILLILITERS, INJECTION FOR INFUSION) (TREPROSTINIL SODIUM) [Suspect]
     Indication: PRIMARY PULMONARY HYPERTENSION
     Dosage: (0.0984 ug/kg,1 in 1 min)
     Route: 058
     Dates: start: 20081229
  2. ADCIRCA (TADALAFIL) [Concomitant]
  3. COUMADIN (WARFARIN SODIUM) [Suspect]

REACTIONS (1)
  - Infusion site infection [None]
